FAERS Safety Report 9486997 (Version 1)
Quarter: 2013Q3

REPORT INFORMATION
  Report Type: Spontaneous
  Country: US (occurrence: None)
  Receive Date: 20130827
  Receipt Date: 20130827
  Transmission Date: 20140515
  Serious: Yes (Hospitalization, Other)
  Sender: FDA-Public Use
  Company Number: US-ME-2012P1068465

PATIENT
  Age: 86 Year
  Sex: Female

DRUGS (1)
  1. FLECAINIDE [Suspect]
     Indication: ATRIAL FIBRILLATION
     Dosage: 2 IN 1 D

REACTIONS (15)
  - Blood creatinine increased [None]
  - Bundle branch block right [None]
  - Electrocardiogram ST segment elevation [None]
  - Electrocardiogram T wave inversion [None]
  - Electrocardiogram abnormal [None]
  - Electrocardiogram QRS complex prolonged [None]
  - Toxicity to various agents [None]
  - Asthenia [None]
  - Decreased appetite [None]
  - Confusional state [None]
  - Nausea [None]
  - Epigastric discomfort [None]
  - Chest discomfort [None]
  - Cognitive disorder [None]
  - Electrocardiogram PR prolongation [None]
